FAERS Safety Report 8934511 (Version 1)
Quarter: 2012Q4

REPORT INFORMATION
  Report Type: 
  Country: US (occurrence: US)
  Receive Date: 20121129
  Receipt Date: 20121129
  Transmission Date: 20130627
  Serious: No
  Sender: FDA-Public Use
  Company Number: US-GLAXOSMITHKLINE-A0964203A

PATIENT
  Age: 27 Year
  Sex: Female

DRUGS (2)
  1. FLOVENT [Suspect]
     Indication: ASTHMA
     Dosage: 1PUFF Per day
     Route: 055
     Dates: start: 20110901
  2. VITAMINS [Concomitant]

REACTIONS (4)
  - Chest discomfort [Unknown]
  - Dyspnoea [Unknown]
  - Pallor [Unknown]
  - Product quality issue [Unknown]
